FAERS Safety Report 9247551 (Version 1)
Quarter: 2013Q1

REPORT INFORMATION
  Report Type: Spontaneous
  Country: US (occurrence: None)
  Receive Date: 20121130
  Receipt Date: 20121130
  Transmission Date: 20140127
  Serious: Yes (Other)
  Sender: FDA-Public Use
  Company Number: FK201201841

PATIENT
  Sex: Female

DRUGS (2)
  1. FLUOROURACIL [Suspect]
     Indication: COLON CANCER
     Dosage: CYCLICAL, INTRAVENOUS (NOT OTHERWISE SPECIFIED)
  2. ELOXATIN [Suspect]
     Indication: COLON CANCER
     Dosage: CYCLICAL, INTRAVENOUS (NOT OTHERWISE SPECIFIED)

REACTIONS (3)
  - Full blood count decreased [None]
  - Incorrect drug administration rate [None]
  - Nausea [None]
